FAERS Safety Report 10056350 (Version 1)
Quarter: 2014Q2

REPORT INFORMATION
  Report Type: Spontaneous
  Country: GB (occurrence: GB)
  Receive Date: 20140403
  Receipt Date: 20140403
  Transmission Date: 20141212
  Serious: Yes (Hospitalization)
  Sender: FDA-Public Use
  Company Number: GB-ASTRAZENECA-2014SE21176

PATIENT
  Age: 66 Year
  Sex: Female

DRUGS (4)
  1. FELODIPINE [Suspect]
     Route: 048
     Dates: end: 20140220
  2. FELODIPINE [Suspect]
     Route: 048
     Dates: start: 20140220, end: 20140311
  3. SIMVASTATIN [Concomitant]
  4. TAMOXIFEN [Concomitant]

REACTIONS (4)
  - Vasculitis [Recovering/Resolving]
  - Ocular hyperaemia [Unknown]
  - Oral pain [Unknown]
  - Arthralgia [Unknown]
